FAERS Safety Report 25779982 (Version 2)
Quarter: 2025Q3

REPORT INFORMATION
  Report Type: Report from Study
  Country: CA (occurrence: CA)
  Receive Date: 20250909
  Receipt Date: 20250924
  Transmission Date: 20251021
  Serious: Yes (Other)
  Sender: ABBVIE
  Company Number: CA-ABBVIE-6448486

PATIENT
  Age: 44 Year
  Sex: Male
  Weight: 97.5 kg

DRUGS (1)
  1. SKYRIZI [Suspect]
     Active Substance: RISANKIZUMAB-RZAA
     Indication: Crohn^s disease
     Route: 058
     Dates: start: 202508

REACTIONS (9)
  - Tooth loss [Unknown]
  - Therapeutic product effect incomplete [Unknown]
  - Pain [Unknown]
  - Abdominal pain [Unknown]
  - Diarrhoea [Unknown]
  - Arthralgia [Unknown]
  - Mass [Unknown]
  - Eye inflammation [Unknown]
  - Hordeolum [Unknown]

NARRATIVE: CASE EVENT DATE: 20250101
